FAERS Safety Report 20646427 (Version 1)
Quarter: 2022Q1

REPORT INFORMATION
  Report Type: Other
  Country: GB (occurrence: None)
  Receive Date: 20220329
  Receipt Date: 20220329
  Transmission Date: 20220423
  Serious: No
  Sender: FDA-Public Use
  Company Number: GB-ROCHE-3057455

PATIENT
  Age: 45 Year
  Sex: Female
  Weight: 95.1 kg

DRUGS (4)
  1. OCRELIZUMAB [Suspect]
     Active Substance: OCRELIZUMAB
     Indication: Relapsing-remitting multiple sclerosis
     Dosage: TOTAL VOLUME PRIOR SAE IS 500 ML
     Route: 042
     Dates: start: 20190805
  2. METHYLPREDNISOLONE [Concomitant]
     Active Substance: METHYLPREDNISOLONE
     Route: 042
     Dates: start: 20220201, end: 20220201
  3. CHLORPHENIRAMINE MALEATE [Concomitant]
     Active Substance: CHLORPHENIRAMINE MALEATE
     Route: 048
     Dates: start: 20220201, end: 20220201
  4. ACETAMINOPHEN [Concomitant]
     Active Substance: ACETAMINOPHEN
     Route: 048
     Dates: start: 20220201, end: 20220201

REACTIONS (1)
  - COVID-19 [Recovering/Resolving]

NARRATIVE: CASE EVENT DATE: 20220227
